FAERS Safety Report 7927723-1 (Version None)
Quarter: 2011Q4

REPORT INFORMATION
  Report Type: 
  Country: None (occurrence: None)
  Receive Date: 20111118
  Receipt Date: 20111110
  Transmission Date: 20120403
  Serious: Yes (Hospitalization)
  Sender: FDA-Public Use
  Company Number: ES-ABBOTT-11P-144-0873612-01

PATIENT
  Age: 32 Year
  Sex: Female

DRUGS (12)
  1. HUMIRA [Suspect]
     Route: 058
     Dates: end: 20090220
  2. HUMIRA [Concomitant]
     Indication: CROHN'S DISEASE
     Route: 058
     Dates: start: 20080617
  3. IMMUNOSUPPRESSANTS [Concomitant]
     Indication: PRODUCT USED FOR UNKNOWN INDICATION
  4. SINTROM [Concomitant]
     Indication: THROMBOSIS PROPHYLAXIS
     Dates: start: 20110726
  5. HUMIRA [Suspect]
     Dosage: WEEK 2
     Route: 058
  6. TINZAPARIN [Concomitant]
     Indication: ANTICOAGULANT THERAPY
     Dates: start: 20090715, end: 20110725
  7. MESALAMINE [Concomitant]
     Indication: PRODUCT USED FOR UNKNOWN INDICATION
  8. HUMIRA [Suspect]
     Indication: CROHN'S DISEASE
     Dosage: BASELINE
     Route: 058
  9. SINTROM [Concomitant]
     Indication: ANTIPHOSPHOLIPID SYNDROME
     Dates: start: 20091124, end: 20110715
  10. CALCIUM +VIT D [Concomitant]
     Indication: OSTEOPOROSIS PROPHYLAXIS
     Dates: start: 20051215
  11. TINZAPARIN [Concomitant]
     Indication: THROMBOSIS PROPHYLAXIS
  12. CORTICOSTEROIDS [Concomitant]
     Indication: PRODUCT USED FOR UNKNOWN INDICATION

REACTIONS (1)
  - INTESTINAL ANASTOMOSIS COMPLICATION [None]
